FAERS Safety Report 8910930 (Version 1)
Quarter: 2012Q4

REPORT INFORMATION
  Report Type: Spontaneous
  Country: GB (occurrence: None)
  Receive Date: 20121113
  Receipt Date: 20121113
  Transmission Date: 20130627
  Serious: Yes (Death, Life-Threatening, Hospitalization)
  Sender: FDA-Public Use
  Company Number: 1481805

PATIENT
  Age: 80 Year
  Sex: Male

DRUGS (1)
  1. MITOXANTRONE HYDROCHLORIDE [Suspect]
     Indication: ACUTE MYELOBLASTIC LEUKAEMIA
     Dosage: intravenous (not otherwise specified)
     Route: 042
     Dates: start: 20120928, end: 20120928

REACTIONS (2)
  - Tumour lysis syndrome [None]
  - Renal failure acute [None]
